FAERS Safety Report 6592202-3 (Version None)
Quarter: 2010Q1

REPORT INFORMATION
  Report Type: 
  Country: None (occurrence: None)
  Receive Date: 20100221
  Receipt Date: 20090914
  Transmission Date: 20100710
  Serious: No
  Sender: FDA-Public Use
  Company Number: US-ALLERGAN-0912711US

PATIENT
  Sex: Male

DRUGS (4)
  1. BOTOX [Suspect]
     Indication: BLEPHAROSPASM
     Dosage: UNK
     Route: 030
     Dates: start: 20090910, end: 20090910
  2. BOTOX [Suspect]
     Indication: FACIAL SPASM
     Dosage: UNK
     Route: 030
  3. BOTOX [Suspect]
     Dosage: UNK
     Route: 030
  4. BOTOX [Suspect]
     Dosage: UNK
     Route: 030

REACTIONS (3)
  - DRUG ADMINISTERED AT INAPPROPRIATE SITE [None]
  - EYELID PTOSIS [None]
  - OVERDOSE [None]
